FAERS Safety Report 10409313 (Version 1)
Quarter: 2014Q3

REPORT INFORMATION
  Report Type: Report from Study
  Country: ZA (occurrence: ZA)
  Receive Date: 20140826
  Receipt Date: 20140826
  Transmission Date: 20150326
  Serious: Yes (Hospitalization, Other)
  Sender: FDA-Public Use
  Company Number: ZA-BAYER-2014-079524

PATIENT
  Sex: Female

DRUGS (3)
  1. MYPAID [Concomitant]
  2. BETAFERON [Suspect]
     Active Substance: INTERFERON BETA-1B
     Dosage: UNK
     Dates: start: 2012
  3. BETAFERON [Suspect]
     Active Substance: INTERFERON BETA-1B
     Dosage: UNK
     Dates: end: 2012

REACTIONS (17)
  - Multiple sclerosis relapse [Recovering/Resolving]
  - Visual impairment [Recovering/Resolving]
  - Dizziness [None]
  - Hearing impaired [Recovering/Resolving]
  - Gait disturbance [Recovering/Resolving]
  - Drug dose omission [None]
  - Multiple sclerosis relapse [None]
  - Drug dose omission [None]
  - Pain in extremity [Recovered/Resolved]
  - Abdominal abscess [None]
  - Drug ineffective [None]
  - Musculoskeletal stiffness [None]
  - Urinary tract infection [None]
  - Balance disorder [None]
  - Hypoaesthesia [None]
  - Balance disorder [Recovering/Resolving]
  - Depression [None]

NARRATIVE: CASE EVENT DATE: 2007
